FAERS Safety Report 9500179 (Version 1)
Quarter: 2013Q1

REPORT INFORMATION
  Report Type: Spontaneous
  Country: US (occurrence: None)
  Receive Date: 20130129
  Receipt Date: 20130129
  Transmission Date: 20140127
  Serious: Yes (Other)
  Sender: FDA-Public Use
  Company Number: 1000038103

PATIENT
  Age: 70 Year
  Sex: Female

DRUGS (5)
  1. BYSTOLIC [Suspect]
     Indication: HYPERTENSION
     Dates: start: 2011, end: 2012
  2. BYSTOLIC [Suspect]
     Route: 048
     Dates: start: 2012, end: 201208
  3. BYSTOLIC [Suspect]
     Indication: HYPERTENSION
     Route: 048
     Dates: start: 201208, end: 201208
  4. HYDROCHLOROTHIAZIDE (HYDROCHLOROTHIAZIDE) [Suspect]
     Indication: HYPERTENSION
  5. HYDROCHLOROTHIAZIDE (HYDROCHLOROTHIAZIDE) [Suspect]
     Indication: HYPERTENSION
     Dates: start: 2012, end: 201208

REACTIONS (5)
  - Blood pressure increased [None]
  - Pain in extremity [None]
  - Burning sensation [None]
  - Pain [None]
  - Headache [None]
